FAERS Safety Report 11245324 (Version 1)
Quarter: 2015Q3

REPORT INFORMATION
  Report Type: Spontaneous
  Country: US (occurrence: US)
  Receive Date: 20150707
  Receipt Date: 20150707
  Transmission Date: 20151125
  Serious: No
  Sender: FDA-Public Use
  Company Number: US-DSJP-DSU-2015-110475

PATIENT
  Sex: Female
  Weight: 40.82 kg

DRUGS (1)
  1. WELCHOL [Suspect]
     Active Substance: COLESEVELAM HYDROCHLORIDE
     Indication: BLOOD CHOLESTEROL INCREASED
     Dosage: 1875 MG, QD
     Route: 048

REACTIONS (2)
  - Feeling abnormal [Unknown]
  - Incorrect dose administered [Not Recovered/Not Resolved]
